FAERS Safety Report 9681865 (Version 1)
Quarter: 2013Q4

REPORT INFORMATION
  Report Type: Spontaneous
  Country: US (occurrence: US)
  Receive Date: 20131111
  Receipt Date: 20131111
  Transmission Date: 20140711
  Serious: No
  Sender: FDA-Public Use
  Company Number: US-PFIZER INC-2013318399

PATIENT
  Age: 40 Year
  Sex: Female

DRUGS (1)
  1. MEDROL [Suspect]
     Dosage: 8 MG, 1X/DAY

REACTIONS (1)
  - Weight increased [Unknown]
